FAERS Safety Report 24805732 (Version 1)
Quarter: 2025Q1

REPORT INFORMATION
  Report Type: Spontaneous
  Country: CN (occurrence: CN)
  Receive Date: 20250103
  Receipt Date: 20250103
  Transmission Date: 20250409
  Serious: Yes (Life-Threatening, Hospitalization, Disabling, Other)
  Sender: PFIZER
  Company Number: CN-PFIZER INC-PV202400170064

PATIENT
  Age: 39 Year
  Sex: Female
  Weight: 45 kg

DRUGS (2)
  1. SOLU-MEDROL [Suspect]
     Active Substance: METHYLPREDNISOLONE SODIUM SUCCINATE
     Indication: Anaemia
     Dosage: 40 MG, 1X/DAY
     Route: 041
     Dates: start: 20241219, end: 20241226
  2. SODIUM CHLORIDE [Concomitant]
     Active Substance: SODIUM CHLORIDE
     Indication: Vehicle solution use
     Dosage: 100 ML, 1X/DAY
     Route: 041
     Dates: start: 20241219, end: 20241223

REACTIONS (5)
  - Cardiac failure [Recovering/Resolving]
  - Pleural effusion [Recovering/Resolving]
  - Tachypnoea [Recovering/Resolving]
  - Orthopnoea [Recovering/Resolving]
  - Blood pressure increased [Recovering/Resolving]

NARRATIVE: CASE EVENT DATE: 20241226
